FAERS Safety Report 5935927-2 (Version None)
Quarter: 2008Q4

REPORT INFORMATION
  Report Type: 
  Country: None (occurrence: None)
  Receive Date: 20081030
  Receipt Date: 20081021
  Transmission Date: 20090506
  Serious: Yes (Hospitalization)
  Sender: FDA-Public Use
  Company Number: US-ELI_LILLY_AND_COMPANY-US200809000969

PATIENT
  Sex: Male
  Weight: 69.388 kg

DRUGS (8)
  1. CIALIS [Suspect]
     Indication: ERECTILE DYSFUNCTION
     Dosage: 10 MG, UNK
     Dates: start: 20080830
  2. AVALIDE [Interacting]
     Indication: HYPERTENSION
     Dosage: 12.5 MG, DAILY (1/D)
  3. AVALIDE [Interacting]
     Dosage: 500 UNK, UNK
     Dates: start: 20010101, end: 20080101
  4. AVALIDE [Interacting]
     Dosage: 250 UNK, UNK
     Dates: start: 20080901
  5. ETHAMBUTOL HYDROCHLORIDE [Interacting]
     Indication: ASPERGILLOSIS
     Dates: start: 20080101, end: 20080801
  6. ACYCLOVIR [Concomitant]
     Indication: ASPERGILLOSIS
     Dates: start: 20080101
  7. AZITHROMYCIN [Interacting]
     Indication: MYCOBACTERIUM AVIUM COMPLEX INFECTION
     Dates: start: 20080101
  8. LEVAQUIN [Interacting]
     Indication: MYCOBACTERIUM AVIUM COMPLEX INFECTION
     Dates: start: 20080101

REACTIONS (3)
  - DRUG INTERACTION [None]
  - HYPOTENSION [None]
  - LOSS OF CONSCIOUSNESS [None]
